FAERS Safety Report 4889620-8 (Version None)
Quarter: 2006Q1

REPORT INFORMATION
  Report Type: 
  Country: None (occurrence: None)
  Receive Date: 20060124
  Receipt Date: 20060119
  Transmission Date: 20060701
  Serious: Yes (Other)
  Sender: FDA-Public Use
  Company Number: CA-GLAXOSMITHKLINE-A0590336A

PATIENT
  Sex: Female

DRUGS (1)
  1. ZYBAN [Suspect]
     Route: 048
     Dates: start: 20051201, end: 20051201

REACTIONS (6)
  - AGITATION [None]
  - ANXIETY [None]
  - FEAR [None]
  - MALAISE [None]
  - PARANOIA [None]
  - SUICIDAL IDEATION [None]
